FAERS Safety Report 24381438 (Version 1)
Quarter: 2024Q4

REPORT INFORMATION
  Report Type: Spontaneous
  Country: US (occurrence: US)
  Receive Date: 20241001
  Receipt Date: 20241001
  Transmission Date: 20250114
  Serious: No
  Sender: ABBVIE
  Company Number: US-ABBVIE-5940873

PATIENT
  Age: 67 Year
  Sex: Female

DRUGS (2)
  1. ELAHERE [Suspect]
     Active Substance: MIRVETUXIMAB SORAVTANSINE-GYNX
     Indication: Ovarian cancer recurrent
     Route: 042
     Dates: start: 20240916
  2. GABAPENTIN [Concomitant]
     Active Substance: GABAPENTIN
     Indication: Neuropathy peripheral
     Dosage: STRENGTH: 100 MG ?TWO IN THE MORNING TWO IN THE EVENING

REACTIONS (15)
  - Weight decreased [Not Recovered/Not Resolved]
  - Chest pain [Recovering/Resolving]
  - Bone pain [Unknown]
  - Pain in extremity [Unknown]
  - Musculoskeletal stiffness [Unknown]
  - Musculoskeletal chest pain [Unknown]
  - Vomiting [Unknown]
  - Diarrhoea [Not Recovered/Not Resolved]
  - Abdominal pain upper [Unknown]
  - Back pain [Unknown]
  - Myalgia [Unknown]
  - Neck pain [Unknown]
  - Arthralgia [Unknown]
  - Non-cardiac chest pain [Unknown]
  - Musculoskeletal discomfort [Unknown]

NARRATIVE: CASE EVENT DATE: 20240901
